FAERS Safety Report 6753075-9 (Version None)
Quarter: 2010Q2

REPORT INFORMATION
  Report Type: 
  Country: None (occurrence: None)
  Receive Date: 20100602
  Receipt Date: 20100602
  Transmission Date: 20101027
  Serious: No
  Sender: FDA-Public Use
  Company Number: None

PATIENT
  Sex: Female
  Weight: 54.4316 kg

DRUGS (1)
  1. LYRICA [Suspect]
     Indication: SURGERY
     Dosage: 1 DAILY 2X

REACTIONS (2)
  - THROAT TIGHTNESS [None]
  - VOCAL CORD DISORDER [None]
